FAERS Safety Report 20752124 (Version 2)
Quarter: 2022Q2

REPORT INFORMATION
  Report Type: Report from Study
  Country: US (occurrence: US)
  Receive Date: 20220426
  Receipt Date: 20220517
  Transmission Date: 20220721
  Serious: Yes (Hospitalization)
  Sender: FDA-Public Use
  Company Number: US-KARYOPHARM-2022KPT000482

PATIENT
  Age: 44 Year
  Sex: Male
  Weight: 68 kg

DRUGS (18)
  1. SELINEXOR [Suspect]
     Active Substance: SELINEXOR
     Indication: Metastatic malignant melanoma
     Dosage: 80 MG, WEEKLY
     Route: 048
     Dates: start: 20220209
  2. PEMBROLIZUMAB [Suspect]
     Active Substance: PEMBROLIZUMAB
     Indication: Metastatic malignant melanoma
     Dosage: 400 MG, 1X/6 WEEKS
     Route: 042
     Dates: start: 20220209
  3. ONDANSETRON [Concomitant]
     Active Substance: ONDANSETRON
     Indication: Nausea
     Dosage: 8 MG, PRN
     Route: 048
     Dates: start: 2019
  4. LORAZEPAM [Concomitant]
     Active Substance: LORAZEPAM
     Indication: Insomnia
     Dosage: 0.5 MG, PRN
     Route: 048
     Dates: start: 2019
  5. LORAZEPAM [Concomitant]
     Active Substance: LORAZEPAM
     Indication: Anxiety
  6. OXYCODONE [Concomitant]
     Active Substance: OXYCODONE
     Indication: Arthralgia
     Dosage: 5 MG, PRN
     Route: 048
     Dates: start: 2019
  7. OXYCODONE [Concomitant]
     Active Substance: OXYCODONE
     Indication: Pain in extremity
  8. PREGABALIN [Concomitant]
     Active Substance: PREGABALIN
     Indication: Peripheral sensory neuropathy
     Dosage: 25 MG, QD
     Route: 048
     Dates: start: 2021
  9. PROCHLORPERAZINE [Concomitant]
     Active Substance: PROCHLORPERAZINE
     Indication: Nausea
     Dosage: 10 MG, PRN
     Route: 048
     Dates: start: 2018
  10. MORPHINE [Concomitant]
     Active Substance: MORPHINE
     Indication: Arthralgia
     Dosage: 15 MG, BID
     Route: 048
     Dates: start: 2020
  11. MORPHINE [Concomitant]
     Active Substance: MORPHINE
     Indication: Pain in extremity
  12. KEPPRA [Concomitant]
     Active Substance: LEVETIRACETAM
     Indication: Seizure
     Dosage: 750 MG, BID
     Route: 048
     Dates: start: 2020
  13. ZOMETA [Concomitant]
     Active Substance: ZOLEDRONIC ACID
     Indication: Hypercalcaemia
     Dosage: 4 MG, PRN
     Route: 042
     Dates: start: 20220204
  14. ALTEPLASE [Concomitant]
     Active Substance: ALTEPLASE
     Indication: Catheter management
     Dosage: 2 MG, PRN
     Route: 042
     Dates: start: 20220204
  15. OLANZAPINE [Concomitant]
     Active Substance: OLANZAPINE
     Indication: Nausea
     Dosage: 2.5 MG, QD
     Route: 048
     Dates: start: 20220209
  16. DARBEPOETIN ALFA [Concomitant]
     Active Substance: DARBEPOETIN ALFA
     Indication: Anaemia
     Dosage: 400 UG, PRN
     Route: 058
     Dates: start: 20201125
  17. KEFLEX [Concomitant]
     Active Substance: CEPHALEXIN
     Indication: Arthritis
     Dosage: 500 MG, QID
     Route: 048
     Dates: start: 20220407
  18. MEGACE [Concomitant]
     Active Substance: MEGESTROL ACETATE
     Indication: Decreased appetite
     Dosage: 625 MG, QD
     Route: 048
     Dates: start: 20220407

REACTIONS (2)
  - Adrenal insufficiency [Recovering/Resolving]
  - Asthenia [Not Recovered/Not Resolved]

NARRATIVE: CASE EVENT DATE: 20220418
